FAERS Safety Report 10679199 (Version 2)
Quarter: 2015Q1

REPORT INFORMATION
  Report Type: Spontaneous
  Country: IT (occurrence: IT)
  Receive Date: 20141229
  Receipt Date: 20150129
  Transmission Date: 20150720
  Serious: Yes (Other)
  Sender: FDA-Public Use
  Company Number: IT-TEVA-530712ISR

PATIENT
  Age: 51 Year
  Sex: Male

DRUGS (5)
  1. TOPAMAX [Suspect]
     Active Substance: TOPIRAMATE
     Indication: EPILEPSY
     Dosage: 200 MILLIGRAM DAILY;
  2. CARBAMAZEPINA [Suspect]
     Active Substance: CARBAMAZEPINE
     Route: 048
     Dates: start: 20140810, end: 20140810
  3. VENLAFAXINE [Concomitant]
     Active Substance: VENLAFAXINE HYDROCHLORIDE
     Indication: EPILEPSY
     Dosage: 75 MILLIGRAM DAILY;
  4. CARBAMAZEPINA [Suspect]
     Active Substance: CARBAMAZEPINE
     Indication: EPILEPSY
     Dosage: 1200 MILLIGRAM DAILY;
     Route: 048
  5. TOPAMAX [Suspect]
     Active Substance: TOPIRAMATE
     Dates: start: 20140810, end: 20140810

REACTIONS (3)
  - Bradyphrenia [Recovered/Resolved]
  - Drug abuse [Recovered/Resolved]
  - Intentional self-injury [Recovered/Resolved]

NARRATIVE: CASE EVENT DATE: 20140810
